FAERS Safety Report 11256842 (Version 1)
Quarter: 2015Q3

REPORT INFORMATION
  Report Type: Spontaneous
  Country: US (occurrence: US)
  Receive Date: 20150709
  Receipt Date: 20150709
  Transmission Date: 20151125
  Serious: No
  Sender: FDA-Public Use
  Company Number: US-PURDUE-USA-2014-0115434

PATIENT
  Age: 80 Year
  Sex: Female

DRUGS (2)
  1. BUTRANS [Suspect]
     Active Substance: BUPRENORPHINE
     Indication: PAIN
  2. BUTRANS [Suspect]
     Active Substance: BUPRENORPHINE
     Indication: ARTHRITIS
     Dosage: 10 MCG/HR, WEEKLY
     Route: 062
     Dates: start: 20140629

REACTIONS (7)
  - Drug ineffective [Unknown]
  - Fatigue [Recovering/Resolving]
  - Activities of daily living impaired [Recovering/Resolving]
  - Asthenia [Not Recovered/Not Resolved]
  - Application site swelling [Recovering/Resolving]
  - Application site pruritus [Recovering/Resolving]
  - Inadequate analgesia [Unknown]

NARRATIVE: CASE EVENT DATE: 20140629
